FAERS Safety Report 5620708-X (Version None)
Quarter: 2008Q1

REPORT INFORMATION
  Report Type: 
  Country: None (occurrence: None)
  Receive Date: 20080208
  Receipt Date: 20080206
  Transmission Date: 20080703
  Serious: Yes (Other)
  Sender: FDA-Public Use
  Company Number: GB-MERCK-0802GBR00024

PATIENT
  Age: 39 Year
  Sex: Male
  Weight: 80 kg

DRUGS (3)
  1. COZAAR [Suspect]
     Indication: HYPERTENSION
     Route: 048
     Dates: start: 20071123, end: 20080104
  2. FLUTICASONE FUROATE [Concomitant]
  3. ALBUTEROL [Concomitant]

REACTIONS (2)
  - CHEST PAIN [None]
  - RAYNAUD'S PHENOMENON [None]
